FAERS Safety Report 8645744 (Version 2)
Quarter: 2012Q4

REPORT INFORMATION
  Report Type: 
  Country: FR (occurrence: FR)
  Receive Date: 20120702
  Receipt Date: 20121017
  Transmission Date: 20130627
  Serious: Yes (Other)
  Sender: FDA-Public Use
  Company Number: FR-ASTRAZENECA-2012SE41792

PATIENT
  Age: 47 Day
  Sex: Male
  Weight: 92 kg

DRUGS (3)
  1. CASODEX [Suspect]
     Indication: PROSTATE CANCER
     Route: 048
     Dates: start: 201111, end: 201201
  2. CLASTOBAN [Concomitant]
     Route: 048
  3. DECAPEPTYL [Concomitant]

REACTIONS (3)
  - Pericarditis [Unknown]
  - Myalgia [Unknown]
  - Tendon pain [Unknown]
